FAERS Safety Report 10060346 (Version 1)
Quarter: 2014Q2

REPORT INFORMATION
  Report Type: Report from Study
  Country: US (occurrence: US)
  Receive Date: 20140404
  Receipt Date: 20140404
  Transmission Date: 20141212
  Serious: Yes (Other)
  Sender: FDA-Public Use
  Company Number: PHEH2014US006633

PATIENT
  Sex: Male

DRUGS (1)
  1. EXELON PATCH [Suspect]
     Dosage: UNK UKN, UNK
     Route: 062

REACTIONS (2)
  - Cardiac disorder [Unknown]
  - Dementia Alzheimer^s type [Unknown]
